FAERS Safety Report 23819327 (Version 3)
Quarter: 2024Q3

REPORT INFORMATION
  Report Type: Spontaneous
  Country: US (occurrence: US)
  Receive Date: 20240506
  Receipt Date: 20240730
  Transmission Date: 20241017
  Serious: Yes (Other)
  Sender: SANOFI AVENTIS
  Company Number: US-SA-SAC20240426000292

PATIENT
  Age: 65 Year
  Sex: Female

DRUGS (1)
  1. DUPIXENT [Suspect]
     Active Substance: DUPILUMAB
     Indication: Asthma
     Dosage: 300 MG, QOW
     Route: 058

REACTIONS (13)
  - Syncope [Unknown]
  - Loss of consciousness [Unknown]
  - Injection site irritation [Unknown]
  - Headache [Unknown]
  - Dizziness [Unknown]
  - Glycosylated haemoglobin decreased [Unknown]
  - Tremor [Unknown]
  - Injection site pruritus [Unknown]
  - Asthma [Unknown]
  - Dyspnoea [Unknown]
  - Respiration abnormal [Unknown]
  - Wheezing [Unknown]
  - Cough [Unknown]

NARRATIVE: CASE EVENT DATE: 20240101
